FAERS Safety Report 9886910 (Version 1)
Quarter: 2014Q1

REPORT INFORMATION
  Report Type: Report from Study
  Country: BR (occurrence: BR)
  Receive Date: 20140210
  Receipt Date: 20140210
  Transmission Date: 20141002
  Serious: Yes (Hospitalization)
  Sender: FDA-Public Use
  Company Number: BR-ROCHE-1346130

PATIENT
  Age: 57 Year
  Sex: Female
  Weight: 66.28 kg

DRUGS (5)
  1. XOLAIR [Suspect]
     Indication: ASTHMA
     Route: 065
  2. BUDESONIDE [Concomitant]
     Route: 065
  3. SYMBICORT [Concomitant]
  4. SALBUTAMOL [Concomitant]
  5. SIMVASTATIN [Concomitant]

REACTIONS (6)
  - Malaise [Recovered/Resolved]
  - Asthma [Recovered/Resolved]
  - Influenza [Recovered/Resolved]
  - Chest pain [Recovering/Resolving]
  - Back pain [Recovering/Resolving]
  - Blood cholesterol increased [Recovered/Resolved]
